FAERS Safety Report 11623253 (Version 1)
Quarter: 2015Q4

REPORT INFORMATION
  Report Type: Spontaneous
  Country: US (occurrence: US)
  Receive Date: 20151013
  Receipt Date: 20151013
  Transmission Date: 20160304
  Serious: No
  Sender: FDA-Public Use
  Company Number: US-JNJFOC-20150110771

PATIENT
  Age: 30 Year
  Sex: Female

DRUGS (3)
  1. TYLENOL [Suspect]
     Active Substance: ACETAMINOPHEN
     Indication: PREMENSTRUAL SYNDROME
     Dosage: OVER THE LAST 4 HOURS
     Route: 048
     Dates: start: 20070210
  2. ALCOHOL. [Suspect]
     Active Substance: ALCOHOL
     Indication: PREMENSTRUAL SYNDROME
     Dosage: A COUPLE OF DRINKS 4 HOURS AGO
     Route: 048
     Dates: start: 20070210
  3. TYLENOL [Suspect]
     Active Substance: ACETAMINOPHEN
     Route: 048

REACTIONS (2)
  - Off label use [Unknown]
  - Vomiting [Unknown]

NARRATIVE: CASE EVENT DATE: 20070210
